FAERS Safety Report 14509960 (Version 1)
Quarter: 2018Q1

REPORT INFORMATION
  Report Type: Spontaneous
  Country: FR (occurrence: FR)
  Receive Date: 20180209
  Receipt Date: 20180209
  Transmission Date: 20180509
  Serious: Yes (Hospitalization)
  Sender: FDA-Public Use
  Company Number: PHHY2018FR016988

PATIENT
  Age: 68 Year
  Sex: Male
  Weight: 113 kg

DRUGS (15)
  1. LEXOMIL [Suspect]
     Active Substance: BROMAZEPAM
     Indication: ANXIOLYTIC THERAPY
     Dosage: 1 DF, (1 UG/LITRE) UNK
     Route: 048
  2. RISPERDAL [Suspect]
     Active Substance: RISPERIDONE
     Indication: PERSONALITY DISORDER
     Dosage: 3 DF, (3 UG/LITRE) UNK
     Route: 048
  3. PRAVASTATIN. [Concomitant]
     Active Substance: PRAVASTATIN
     Indication: DYSLIPIDAEMIA
     Dosage: 1 DF, (1 UG/LITRE) UNK
     Route: 048
  4. AVODART [Concomitant]
     Active Substance: DUTASTERIDE
     Indication: BENIGN PROSTATIC HYPERPLASIA
     Dosage: 1 DF, (1 UG/LITRE) UNK
     Route: 048
  5. PAROXETINE. [Concomitant]
     Active Substance: PAROXETINE
     Indication: DEPRESSION
     Dosage: 20 MG, UNK
     Route: 048
  6. VALSARTAN. [Suspect]
     Active Substance: VALSARTAN
     Indication: HYPERTENSION
     Dosage: 40 MG, UNK
     Route: 048
  7. XATRAL [Suspect]
     Active Substance: ALFUZOSIN
     Indication: BENIGN PROSTATIC HYPERPLASIA
     Dosage: 1 DF, (1 UG/LITRE) UNK
     Route: 065
  8. PERMIXON [Concomitant]
     Active Substance: HERBALS\SAW PALMETTO
     Indication: BENIGN PROSTATIC HYPERPLASIA
     Dosage: 2 DF, (2 UG/LITRE) UNK
     Route: 048
  9. KIVEXA [Suspect]
     Active Substance: ABACAVIR SULFATE\LAMIVUDINE
     Indication: HIV INFECTION
     Dosage: 1 DF, (1 UG/LITRE) UNK
     Route: 048
  10. TOVIAZ [Suspect]
     Active Substance: FESOTERODINE FUMARATE
     Indication: URINARY INCONTINENCE
     Dosage: 1 DF, (1 UG/LITRE) UNK
     Route: 048
  11. JANUVIA [Concomitant]
     Active Substance: SITAGLIPTIN PHOSPHATE
     Indication: TYPE 2 DIABETES MELLITUS
     Dosage: 1 DF, (1 UG/LITRE) UNK
     Route: 048
  12. LORMETAZEPAM [Suspect]
     Active Substance: LORMETAZEPAM
     Indication: ANXIOLYTIC THERAPY
     Dosage: 1 MG, UNK
     Route: 048
  13. ISENTRESS [Suspect]
     Active Substance: RALTEGRAVIR POTASSIUM
     Indication: HIV INFECTION
     Dosage: 2 DF, (2 UG/LITRE) UNK
     Route: 048
  14. REPAGLINIDE. [Concomitant]
     Active Substance: REPAGLINIDE
     Indication: HYPERTENSION
     Dosage: 3 G, UNK
     Route: 048
  15. TADENAN [Concomitant]
     Active Substance: PYGEUM
     Indication: BENIGN PROSTATIC HYPERPLASIA
     Dosage: 2 DF, (2 UG/LITRE) UNK
     Route: 048

REACTIONS (2)
  - Fall [Recovered/Resolved]
  - Vertigo [Recovered/Resolved]

NARRATIVE: CASE EVENT DATE: 20171210
